FAERS Safety Report 7201387-7 (Version None)
Quarter: 2010Q4

REPORT INFORMATION
  Report Type: 
  Country: None (occurrence: None)
  Receive Date: 20101215
  Receipt Date: 20101201
  Transmission Date: 20110411
  Serious: Yes (Hospitalization, Other)
  Sender: FDA-Public Use
  Company Number: 021747

PATIENT
  Sex: Female
  Weight: 50 kg

DRUGS (4)
  1. CIMZIA [Suspect]
     Indication: CROHN'S DISEASE
     Dosage: (200 MG 1X/2 WEEKS, 2 SYRINGES SUBCUTANEOUS)
     Route: 058
     Dates: start: 20101027
  2. PREDNISONE [Concomitant]
  3. CORTIFOAM [Concomitant]
  4. ATIVAN [Concomitant]

REACTIONS (5)
  - ASTHENIA [None]
  - COLITIS [None]
  - DIARRHOEA [None]
  - INFECTION [None]
  - PYREXIA [None]
